FAERS Safety Report 9269378 (Version 4)
Quarter: 2013Q3

REPORT INFORMATION
  Report Type: Report from Study
  Country: FR (occurrence: FR)
  Receive Date: 20130503
  Receipt Date: 20130822
  Transmission Date: 20140515
  Serious: Yes (Hospitalization, Other)
  Sender: FDA-Public Use
  Company Number: FR-MILLENNIUM PHARMACEUTICALS, INC.-2013-02579

PATIENT
  Sex: 0

DRUGS (14)
  1. VELCADE [Suspect]
     Indication: MANTLE CELL LYMPHOMA
     Dosage: 2.13 MG, UNK
     Route: 058
     Dates: start: 20120614, end: 20121206
  2. MABTHERA [Suspect]
     Indication: MANTLE CELL LYMPHOMA
     Dosage: 615 MG, UNK
     Route: 042
     Dates: start: 20120614, end: 20121206
  3. LEVACT [Suspect]
     Indication: MANTLE CELL LYMPHOMA
     Dosage: 147.6 MG, UNK
     Route: 042
     Dates: start: 20120614, end: 20121206
  4. DEXAMETHASONE [Suspect]
     Indication: MANTLE CELL LYMPHOMA
     Dosage: 40 MG, UNK
     Route: 042
     Dates: start: 20120614, end: 20121206
  5. IPRATROPIUM [Concomitant]
     Dosage: UNK
     Dates: start: 20130318
  6. TRIFLUCAN [Concomitant]
     Dosage: 400 MG, UNK
     Route: 042
     Dates: start: 20130318
  7. BISOPROLOL [Concomitant]
     Dosage: 25 MG, UNK
     Route: 048
     Dates: start: 20130318
  8. ESOMEPRAZOLE [Concomitant]
     Dosage: 20 MG, UNK
     Route: 048
     Dates: start: 20130318
  9. DIFFU K [Concomitant]
     Dosage: 1200 MG, UNK
     Route: 048
  10. SPIRONOLACTONE [Concomitant]
     Indication: PROPHYLAXIS
     Dosage: 75 MG, UNK
     Route: 048
     Dates: start: 20120618
  11. MOPRAL                             /00661201/ [Concomitant]
  12. HEMIGOXINE [Concomitant]
  13. ALDACTONE                          /00006201/ [Concomitant]
  14. IMOVANE [Concomitant]

REACTIONS (4)
  - Febrile bone marrow aplasia [Recovered/Resolved]
  - Candida sepsis [Recovered/Resolved]
  - Acute respiratory failure [Recovered/Resolved]
  - Arrhythmia [Recovered/Resolved]
